FAERS Safety Report 4806531-4 (Version None)
Quarter: 2005Q4

REPORT INFORMATION
  Report Type: 
  Country: None (occurrence: None)
  Receive Date: 20051019
  Receipt Date: 20050930
  Transmission Date: 20060501
  Serious: Yes (Disabling)
  Sender: FDA-Public Use
  Company Number: WAES 0212USA00093

PATIENT
  Age: 55 Year
  Sex: Male

DRUGS (6)
  1. COZAAR [Suspect]
     Indication: HYPERTENSION
     Dosage: 25 MG/ DAILY PO; 100 MG/DAILY PO
     Route: 048
     Dates: start: 20020221, end: 20041029
  2. COZAAR [Suspect]
     Indication: HYPERTENSION
     Dosage: 25 MG/ DAILY PO; 100 MG/DAILY PO
     Route: 048
     Dates: start: 20041030
  3. ADALAT [Concomitant]
  4. CALTAN [Concomitant]
  5. CARDENALIN [Concomitant]
  6. ALLOPURINOL [Concomitant]

REACTIONS (7)
  - ANOREXIA [None]
  - AZOTAEMIA [None]
  - DISEASE PROGRESSION [None]
  - HAEMODIALYSIS [None]
  - HYPERKALAEMIA [None]
  - NEPHROGENIC ANAEMIA [None]
  - RENAL FAILURE CHRONIC [None]
